FAERS Safety Report 10041468 (Version 3)
Quarter: 2014Q2

REPORT INFORMATION
  Report Type: Spontaneous
  Country: US (occurrence: US)
  Receive Date: 20140327
  Receipt Date: 20140507
  Transmission Date: 20141212
  Serious: No
  Sender: FDA-Public Use
  Company Number: US-009507513-1403USA011346

PATIENT
  Age: 42 Year
  Sex: Male

DRUGS (2)
  1. ASMANEX TWISTHALER [Suspect]
     Indication: ASTHMA
     Dosage: 220 MICROGRAM, UNKNOWN
     Route: 055
     Dates: start: 201308
  2. ZYRTEC-D [Concomitant]
     Dosage: UNK

REACTIONS (6)
  - Asthma [Not Recovered/Not Resolved]
  - Hypersensitivity [Not Recovered/Not Resolved]
  - Expired product administered [Unknown]
  - Product lot number issue [Unknown]
  - Drug dose omission [Unknown]
  - Product quality issue [Unknown]
